FAERS Safety Report 9339154 (Version 1)
Quarter: 2013Q2

REPORT INFORMATION
  Report Type: Spontaneous
  Country: US (occurrence: US)
  Receive Date: 20130610
  Receipt Date: 20130610
  Transmission Date: 20140414
  Serious: Yes (Other)
  Sender: FDA-Public Use
  Company Number: US-PFIZER INC-2013170643

PATIENT
  Age: 56 Year
  Sex: Female
  Weight: 81.6 kg

DRUGS (3)
  1. PREMARIN [Suspect]
     Indication: HORMONE REPLACEMENT THERAPY
     Dosage: 0.625 MG, 1X/DAY
     Dates: start: 1977
  2. ZOLOFT [Suspect]
     Indication: DEPRESSION
     Dosage: 50 MG IN MORNING AND 100 MG IN NIGHT, 2X/DAY
     Dates: start: 2006
  3. LORTAB [Concomitant]
     Indication: PAIN
     Dosage: UNK

REACTIONS (1)
  - Arthropathy [Unknown]
